FAERS Safety Report 7466055-5 (Version None)
Quarter: 2011Q2

REPORT INFORMATION
  Report Type: 
  Country: None (occurrence: None)
  Receive Date: 20110509
  Receipt Date: 20100615
  Transmission Date: 20111010
  Serious: Yes (Hospitalization)
  Sender: FDA-Public Use
  Company Number: US-ALEXION-A201000664

PATIENT
  Sex: Female

DRUGS (2)
  1. ANTIEPILEPTICS [Concomitant]
     Indication: CONVULSION
  2. SOLIRIS [Suspect]
     Indication: PAROXYSMAL NOCTURNAL HAEMOGLOBINURIA
     Dosage: UNK
     Route: 042

REACTIONS (6)
  - SEPSIS [None]
  - HAEMOGLOBINURIA [None]
  - HAEMOGLOBIN DECREASED [None]
  - CONVULSION [None]
  - BLOOD LACTATE DEHYDROGENASE INCREASED [None]
  - PYREXIA [None]
